FAERS Safety Report 5797210-8 (Version None)
Quarter: 2008Q3

REPORT INFORMATION
  Report Type: 
  Country: None (occurrence: None)
  Receive Date: 20080701
  Receipt Date: 20080619
  Transmission Date: 20090109
  Serious: Yes (Disabling, Other)
  Sender: FDA-Public Use
  Company Number: US-PFIZER INC-2008042299

PATIENT
  Sex: Male

DRUGS (2)
  1. CHANTIX [Suspect]
     Indication: SMOKING CESSATION THERAPY
     Route: 048
     Dates: start: 20071201, end: 20080401
  2. CELEBREX [Concomitant]
     Indication: COSTOCHONDRITIS
     Route: 048

REACTIONS (3)
  - ANXIETY [None]
  - CATATONIA [None]
  - DEPRESSION [None]
